FAERS Safety Report 10766774 (Version 3)
Quarter: 2015Q3

REPORT INFORMATION
  Report Type: Report from Study
  Country: ES (occurrence: ES)
  Receive Date: 20150205
  Receipt Date: 20150922
  Transmission Date: 20151125
  Serious: Yes (Other)
  Sender: FDA-Public Use
  Company Number: PHHY2014ES108243

PATIENT
  Age: 47 Year
  Sex: Female

DRUGS (4)
  1. EXTAVIA [Suspect]
     Active Substance: INTERFERON BETA-1B
     Dosage: 1 ML, UNK
     Route: 058
     Dates: end: 20150904
  2. CITALOPRAM [Concomitant]
     Active Substance: CITALOPRAM HYDROBROMIDE
     Indication: PRODUCT USED FOR UNKNOWN INDICATION
     Dosage: 10 MG, UNK
     Route: 065
  3. EXTAVIA [Suspect]
     Active Substance: INTERFERON BETA-1B
     Indication: MULTIPLE SCLEROSIS
     Dosage: 1 ML, UNK
     Route: 058
     Dates: start: 201210
  4. IBUPROFEN. [Concomitant]
     Active Substance: IBUPROFEN
     Indication: PRODUCT USED FOR UNKNOWN INDICATION
     Dosage: UNK UNK, PRN (WHEN NEEDED)
     Route: 065

REACTIONS (8)
  - Asthenia [Unknown]
  - Central nervous system lesion [Unknown]
  - Multiple sclerosis relapse [Not Recovered/Not Resolved]
  - Sensory loss [Unknown]
  - Hypoaesthesia [Unknown]
  - Intervertebral disc protrusion [Not Recovered/Not Resolved]
  - Paraesthesia [Not Recovered/Not Resolved]
  - Perineurial cyst [Not Recovered/Not Resolved]

NARRATIVE: CASE EVENT DATE: 20140821
